FAERS Safety Report 7089644-9 (Version None)
Quarter: 2010Q4

REPORT INFORMATION
  Report Type: 
  Country: None (occurrence: None)
  Receive Date: 20101108
  Receipt Date: 20101105
  Transmission Date: 20110411
  Serious: Yes (Hospitalization)
  Sender: FDA-Public Use
  Company Number: US-ABBOTT-10P-163-0682114-00

PATIENT
  Sex: Female
  Weight: 69.916 kg

DRUGS (9)
  1. MERIDIA [Suspect]
     Indication: WEIGHT DECREASED
     Dates: start: 20100101, end: 20100920
  2. FIORICET [Suspect]
     Indication: HEADACHE
     Dates: end: 20100920
  3. ROBINUL [Suspect]
     Indication: PRODUCT USED FOR UNKNOWN INDICATION
     Route: 042
     Dates: start: 20100923
  4. DECADRON [Suspect]
     Indication: PRODUCT USED FOR UNKNOWN INDICATION
     Route: 042
     Dates: start: 20100923
  5. FENTANYL CITRATE [Suspect]
     Indication: PRODUCT USED FOR UNKNOWN INDICATION
     Dates: start: 20100923
  6. VERSED [Suspect]
     Indication: PRODUCT USED FOR UNKNOWN INDICATION
     Route: 042
     Dates: start: 20100923
  7. KETALAR [Suspect]
     Indication: PRODUCT USED FOR UNKNOWN INDICATION
     Route: 042
     Dates: start: 20100923
  8. LIDOCAINE 2% [Suspect]
     Indication: PRODUCT USED FOR UNKNOWN INDICATION
     Dates: start: 20100923
  9. FENTANYL CITRATE [Suspect]
     Dates: start: 20100923

REACTIONS (3)
  - CONVULSION [None]
  - DENTAL OPERATION [None]
  - PARTIAL SEIZURES [None]
